FAERS Safety Report 14432984 (Version 3)
Quarter: 2018Q1

REPORT INFORMATION
  Report Type: Spontaneous
  Country: RU (occurrence: RU)
  Receive Date: 20180124
  Receipt Date: 20180301
  Transmission Date: 20180509
  Serious: Yes (Hospitalization, Other)
  Sender: FDA-Public Use
  Company Number: RU-ASTRAZENECA-2018SE08937

PATIENT
  Age: 83 Year
  Sex: Female
  Weight: 50 kg

DRUGS (8)
  1. BRILINTA [Suspect]
     Active Substance: TICAGRELOR
     Indication: MYOCARDIAL INFARCTION
     Route: 048
     Dates: start: 20170823
  2. MEZYM FORTE [Concomitant]
     Active Substance: PANCRELIPASE
  3. CARDIOMAGNYL [Concomitant]
     Active Substance: ASPIRIN\MAGNESIUM HYDROXIDE
  4. BISOPROLOL [Concomitant]
     Active Substance: BISOPROLOL
  5. NIFEDIPINE. [Concomitant]
     Active Substance: NIFEDIPINE
  6. VITAMIN D [Concomitant]
     Active Substance: CHOLECALCIFEROL
  7. SIMVASTATIN. [Concomitant]
     Active Substance: SIMVASTATIN
  8. FESTAL [Concomitant]

REACTIONS (7)
  - Weight decreased [Not Recovered/Not Resolved]
  - Angina pectoris [Recovering/Resolving]
  - Pancreatitis [Recovered/Resolved]
  - Haemoglobin decreased [Not Recovered/Not Resolved]
  - Bile duct stone [Unknown]
  - Blood pressure increased [Recovered/Resolved]
  - Spinal compression fracture [Unknown]

NARRATIVE: CASE EVENT DATE: 201709
